FAERS Safety Report 15790692 (Version 2)
Quarter: 2019Q1

REPORT INFORMATION
  Report Type: Spontaneous
  Country: US (occurrence: US)
  Receive Date: 20190104
  Receipt Date: 20190213
  Transmission Date: 20190417
  Serious: No
  Sender: FDA-Public Use
  Company Number: US-ASTRAZENECA-2018SF60822

PATIENT
  Sex: Female
  Weight: 77.1 kg

DRUGS (1)
  1. SYMBICORT [Suspect]
     Active Substance: BUDESONIDE\FORMOTEROL FUMARATE DIHYDRATE
     Indication: WHEEZING
     Dosage: 160MCG/4.5MCG, 2 PUFFS, TWICE A DAY
     Route: 055
     Dates: start: 201811

REACTIONS (7)
  - Headache [Unknown]
  - Intentional product misuse [Unknown]
  - Sinusitis [Unknown]
  - Nasopharyngitis [Unknown]
  - Product use in unapproved indication [Unknown]
  - Sneezing [Recovered/Resolved]
  - Off label use [Unknown]
